FAERS Safety Report 16862578 (Version 2)
Quarter: 2019Q4

REPORT INFORMATION
  Report Type: Spontaneous
  Country: FR (occurrence: FR)
  Receive Date: 20190927
  Receipt Date: 20191002
  Transmission Date: 20200122
  Serious: Yes (Hospitalization, Other)
  Sender: FDA-Public Use
  Company Number: FR-JNJFOC-20190927543

PATIENT
  Sex: Male

DRUGS (1)
  1. ZYTIGA [Suspect]
     Active Substance: ABIRATERONE ACETATE
     Indication: PRODUCT USED FOR UNKNOWN INDICATION
     Dosage: SINCE ONE AND HALF MONTH.
     Route: 048

REACTIONS (7)
  - Foreign body in respiratory tract [Unknown]
  - Product size issue [Unknown]
  - Pharyngeal oedema [Unknown]
  - Pharyngeal swelling [Unknown]
  - Dysphagia [Unknown]
  - Pharyngeal erythema [Unknown]
  - Oropharyngeal pain [Unknown]

NARRATIVE: CASE EVENT DATE: 201909
